FAERS Safety Report 6742783-1 (Version None)
Quarter: 2010Q2

REPORT INFORMATION
  Report Type: 
  Country: None (occurrence: None)
  Receive Date: 20100525
  Receipt Date: 20100511
  Transmission Date: 20101027
  Serious: Yes (Other)
  Sender: FDA-Public Use
  Company Number: JPI-P-010703

PATIENT
  Age: 59 Year
  Sex: Female

DRUGS (4)
  1. XYREM [Suspect]
     Indication: FIBROMYALGIA
     Dosage: ORAL, 3.25 GM (3.25 GM, 1 IN 1 D), ORAL, 2.75 GM (2.75 GM, 1 IN 1 D), ORAL
     Route: 048
     Dates: end: 20100412
  2. XYREM [Suspect]
     Indication: FIBROMYALGIA
     Dosage: ORAL, 3.25 GM (3.25 GM, 1 IN 1 D), ORAL, 2.75 GM (2.75 GM, 1 IN 1 D), ORAL
     Route: 048
     Dates: end: 20100412
  3. XYREM [Suspect]
     Indication: FIBROMYALGIA
     Dosage: ORAL, 3.25 GM (3.25 GM, 1 IN 1 D), ORAL, 2.75 GM (2.75 GM, 1 IN 1 D), ORAL
     Route: 048
     Dates: start: 20090318
  4. MULTIPLE UNSPECIFIED MEDICATIONS [Concomitant]

REACTIONS (2)
  - OEDEMA PERIPHERAL [None]
  - TRIGGER FINGER [None]
